FAERS Safety Report 6729808-4 (Version None)
Quarter: 2010Q2

REPORT INFORMATION
  Report Type: 
  Country: None (occurrence: None)
  Receive Date: 20100518
  Receipt Date: 20100510
  Transmission Date: 20101027
  Serious: Yes (Other)
  Sender: FDA-Public Use
  Company Number: FR-PFIZER INC-2010039565

PATIENT
  Age: 83 Year
  Sex: Female
  Weight: 60 kg

DRUGS (3)
  1. TAHOR [Suspect]
     Indication: BLOOD CHOLESTEROL
     Dosage: 10 MG, 1X/DAY
     Dates: start: 20070101
  2. KARDEGIC [Concomitant]
     Dosage: 75 MG PER DAY
     Route: 048
  3. BISOPROLOL [Concomitant]
     Dosage: 5 MG, 1X/DAY
     Route: 048

REACTIONS (5)
  - ABDOMINAL PAIN UPPER [None]
  - FATIGUE [None]
  - MALAISE [None]
  - PAIN IN EXTREMITY [None]
  - VERTIGO [None]
